FAERS Safety Report 8008050-3 (Version None)
Quarter: 2011Q4

REPORT INFORMATION
  Report Type: 
  Country: None (occurrence: None)
  Receive Date: 20111227
  Receipt Date: 20111220
  Transmission Date: 20120403
  Serious: Yes (Hospitalization)
  Sender: FDA-Public Use
  Company Number: PHHY2011AU111751

PATIENT
  Age: 53 Year
  Sex: Female

DRUGS (4)
  1. GILENYA [Suspect]
     Dosage: 0.5 MG, UNK
     Route: 048
     Dates: start: 20111215
  2. EFFEXOR [Concomitant]
     Dosage: 75 MG, QD
  3. PREMARIN [Concomitant]
  4. MODURETIC 5-50 [Concomitant]

REACTIONS (1)
  - ATRIAL FIBRILLATION [None]
